FAERS Safety Report 8848896 (Version 1)
Quarter: 2012Q4

REPORT INFORMATION
  Report Type: 
  Country: GB (occurrence: GB)
  Receive Date: 20121018
  Receipt Date: 20121018
  Transmission Date: 20130627
  Serious: Yes (Other)
  Sender: FDA-Public Use
  Company Number: PHFR2012GB005466

PATIENT
  Sex: Male

DRUGS (2)
  1. TRILEPTAL [Suspect]
     Dosage: 150 mg
     Route: 048
  2. TRILEPTAL [Suspect]
     Dosage: 300 mg
     Route: 048

REACTIONS (2)
  - Convulsion [Unknown]
  - Incorrect dose administered [Unknown]
